FAERS Safety Report 17441017 (Version 2)
Quarter: 2020Q1

REPORT INFORMATION
  Report Type: Spontaneous
  Country: ES (occurrence: ES)
  Receive Date: 20200220
  Receipt Date: 20200220
  Transmission Date: 20200409
  Serious: Yes (Death, Hospitalization)
  Sender: FDA-Public Use
  Company Number: ES-RECORDATI RARE DISEASES-2080715

PATIENT
  Age: 10 Year
  Sex: Male
  Weight: 25 kg

DRUGS (1)
  1. CARBAGLU [Suspect]
     Active Substance: CARGLUMIC ACID
     Indication: HYPERAMMONAEMIA

REACTIONS (3)
  - Multiple organ dysfunction syndrome [Fatal]
  - Hyperammonaemia [Unknown]
  - Influenza [Unknown]

NARRATIVE: CASE EVENT DATE: 20200206
